FAERS Safety Report 6493530-2 (Version None)
Quarter: 2009Q4

REPORT INFORMATION
  Report Type: 
  Country: None (occurrence: None)
  Receive Date: 20091214
  Receipt Date: 20091130
  Transmission Date: 20100525
  Serious: Yes (Hospitalization)
  Sender: FDA-Public Use
  Company Number: US-JNJCH-2007326898

PATIENT
  Age: 14 Year
  Sex: Female

DRUGS (2)
  1. ACETYLSALICYLIC ACID [Suspect]
     Route: 048
  2. CIPROFLOXACIN [Suspect]
     Dosage: TEXT:6 TABLETS ONCE
     Route: 048

REACTIONS (4)
  - DIZZINESS [None]
  - EPIGASTRIC DISCOMFORT [None]
  - THERAPEUTIC AGENT TOXICITY [None]
  - TINNITUS [None]
